FAERS Safety Report 6077651-4 (Version None)
Quarter: 2009Q1

REPORT INFORMATION
  Report Type: 
  Country: None (occurrence: None)
  Receive Date: 20090211
  Receipt Date: 20090128
  Transmission Date: 20090719
  Serious: Yes (Other)
  Sender: FDA-Public Use
  Company Number: 2009S1001583

PATIENT
  Age: 70 Year
  Sex: Female
  Weight: 83 kg

DRUGS (8)
  1. ALENDRONIC ACID (ALENDRONIC ACID) (70 MG) [Suspect]
     Indication: DRUG USE FOR UNKNOWN INDICATION
     Dosage: 70 MG; ; ORAL
     Route: 048
  2. ADCAL-D3 [Concomitant]
  3. ASPIRIN [Concomitant]
  4. BENDROFLUMETHIAZIDE [Concomitant]
  5. DOCUSATE [Concomitant]
  6. METFORMIN [Concomitant]
  7. RAMIPRIL [Concomitant]
  8. SIMVASTATIN [Concomitant]

REACTIONS (1)
  - DEPRESSION [None]
